FAERS Safety Report 9798009 (Version 2)
Quarter: 2014Q1

REPORT INFORMATION
  Report Type: Report from Study
  Country: NL (occurrence: NL)
  Receive Date: 20140106
  Receipt Date: 20140113
  Transmission Date: 20141002
  Serious: Yes (Death)
  Sender: FDA-Public Use
  Company Number: PHHY2014NL000605

PATIENT
  Age: 70 Year
  Sex: Female

DRUGS (4)
  1. ZOMETA [Suspect]
     Indication: METASTASES TO BONE
     Dosage: 4 MG PER 100 ML, ONCE EVERY 6 WEEKS
     Route: 042
  2. ZOMETA [Suspect]
     Dosage: 4 MG PER 100 ML, ONCE EVERY 6 WEEKS
     Route: 042
     Dates: start: 20130503
  3. ZOMETA [Suspect]
     Dosage: 4 MG PER 100 ML, ONCE EVERY 6 WEEKS
     Route: 042
     Dates: start: 20131018
  4. ZOMETA [Suspect]
     Dosage: 4 MG PER 100 ML, ONCE EVERY 6 WEEKS
     Route: 042
     Dates: start: 20131128

REACTIONS (3)
  - Peritonitis [Fatal]
  - Breast cancer metastatic [Fatal]
  - Malignant neoplasm progression [Fatal]
